FAERS Safety Report 9069265 (Version 1)
Quarter: 2013Q1

REPORT INFORMATION
  Report Type: Report from Study
  Country: US (occurrence: US)
  Receive Date: 20130131
  Receipt Date: 20130131
  Transmission Date: 20140127
  Serious: No
  Sender: FDA-Public Use
  Company Number: US-ABBOTT-12P-163-1000316-00

PATIENT
  Age: 57 Year
  Sex: Female

DRUGS (23)
  1. HUMIRA [Suspect]
     Indication: ANKYLOSING SPONDYLITIS
     Dates: start: 20120926
  2. METHOTREXATE [Concomitant]
     Indication: PRODUCT USED FOR UNKNOWN INDICATION
     Route: 050
  3. PERCOCET [Concomitant]
     Indication: PRODUCT USED FOR UNKNOWN INDICATION
     Dosage: 10/325 MG 4 TIMES DAILY AS REQUIRED
  4. MORPHINE [Concomitant]
     Indication: ANKYLOSING SPONDYLITIS
     Route: 048
  5. METHOCARBAMOL [Concomitant]
     Indication: MUSCLE RELAXANT THERAPY
  6. ONDANSETRON [Concomitant]
     Indication: NAUSEA
     Dosage: AS REQUIRED
  7. VERAPAMIL ER [Concomitant]
     Indication: PRODUCT USED FOR UNKNOWN INDICATION
     Dosage: 180 MG DAILY
  8. METOPROLOL TARTRATE [Concomitant]
     Indication: PRODUCT USED FOR UNKNOWN INDICATION
     Dosage: 50MG X 1 AT A.M. AND 1/2 AT BEDTIME
  9. HYDRALAZINE [Concomitant]
     Indication: PRODUCT USED FOR UNKNOWN INDICATION
     Route: 048
  10. LISINOPRIL [Concomitant]
     Indication: HYPERTENSION
     Dosage: 10 MG DAILY
     Route: 048
  11. ALBUTEROL [Concomitant]
     Indication: ASTHMA
  12. DICYCLOMINE [Concomitant]
     Indication: ABDOMINAL PAIN UPPER
  13. OMEPRAZOLE [Concomitant]
     Indication: PRODUCT USED FOR UNKNOWN INDICATION
     Dosage: 20 MG DAILY
  14. RANITIDINE [Concomitant]
     Indication: GASTROOESOPHAGEAL REFLUX DISEASE
  15. LORAZEPAM [Concomitant]
     Indication: ANXIETY
  16. AMBIEN [Concomitant]
     Indication: INSOMNIA
     Dosage: AT BEDTIME
  17. CITALOPRAM [Concomitant]
     Indication: NERVOUSNESS
  18. PREDNISONE [Concomitant]
     Indication: INFLAMMATION
     Route: 048
  19. FOLIC ACID [Concomitant]
     Indication: PRODUCT USED FOR UNKNOWN INDICATION
     Dosage: 1 MG DAILY
     Route: 048
  20. VITAMIN B-12 [Concomitant]
     Indication: PRODUCT USED FOR UNKNOWN INDICATION
     Dosage: 1000 MCG DAILY
  21. ALLEGRA [Concomitant]
     Indication: HYPERSENSITIVITY
  22. PHENERGAN [Concomitant]
     Indication: NAUSEA
  23. STOOL SOFTENER [Concomitant]
     Indication: PRODUCT USED FOR UNKNOWN INDICATION

REACTIONS (2)
  - Fatigue [Not Recovered/Not Resolved]
  - Somnolence [Not Recovered/Not Resolved]
